FAERS Safety Report 10781303 (Version 1)
Quarter: 2015Q1

REPORT INFORMATION
  Report Type: Spontaneous
  Country: US (occurrence: US)
  Receive Date: 20150210
  Receipt Date: 20150210
  Transmission Date: 20150721
  Serious: No
  Sender: FDA-Public Use
  Company Number: US-GLAXOSMITHKLINE-A1071062A

PATIENT

DRUGS (2)
  1. FLOLAN [Suspect]
     Active Substance: EPOPROSTENOL SODIUM
     Indication: HEART DISEASE CONGENITAL
     Dosage: 20 NG/KG/MIN CONTINUOUSLY; 1.5 MG VIAL STRENGTH, 30,000 NG/ML CONCENTRATION, 84 ML/DAY.
     Route: 042
     Dates: start: 20131220
  2. DRESSING [Suspect]
     Active Substance: UNSPECIFIED INGREDIENT
     Route: 061

REACTIONS (3)
  - Catheter site rash [Recovered/Resolved]
  - Skin reaction [Recovered/Resolved]
  - Catheter site inflammation [Recovered/Resolved]
